FAERS Safety Report 6249993-0 (Version None)
Quarter: 2009Q2

REPORT INFORMATION
  Report Type: 
  Country: None (occurrence: None)
  Receive Date: 20090625
  Receipt Date: 20090617
  Transmission Date: 20091009
  Serious: Yes (Other)
  Sender: FDA-Public Use
  Company Number: SPV1-2009-01280

PATIENT
  Age: 13 Year
  Sex: Male

DRUGS (1)
  1. ELAPRASE [Suspect]
     Indication: MUCOPOLYSACCHARIDOSIS II
     Dosage: IV DRIP
     Route: 041
     Dates: start: 20080626

REACTIONS (2)
  - CARDIO-RESPIRATORY ARREST [None]
  - GASTROOESOPHAGEAL REFLUX DISEASE [None]
